FAERS Safety Report 6983551-5 (Version None)
Quarter: 2010Q3

REPORT INFORMATION
  Report Type: 
  Country: None (occurrence: None)
  Receive Date: 20100914
  Receipt Date: 20080818
  Transmission Date: 20110219
  Serious: Yes (Hospitalization)
  Sender: FDA-Public Use
  Company Number: US-WYE-H05324908

PATIENT
  Sex: Male
  Weight: 71.8 kg

DRUGS (14)
  1. TYGACIL [Suspect]
     Indication: MYCOBACTERIUM ABSCESSUS INFECTION
     Route: 042
     Dates: start: 20080417, end: 20080801
  2. AMITRIPTYLINE HCL [Concomitant]
     Route: 048
     Dates: start: 20080411
  3. CLARITHROMYCIN [Concomitant]
     Route: 048
     Dates: start: 20080411
  4. GABAPENTIN [Concomitant]
     Route: 048
     Dates: start: 20080411
  5. OXYCONTIN [Concomitant]
     Route: 048
     Dates: start: 20080411
  6. OXYCONTIN [Concomitant]
     Route: 048
     Dates: start: 20080411
  7. MEROPENEM [Concomitant]
     Dosage: UNKNOWN
  8. OXYCODONE [Concomitant]
     Route: 048
     Dates: start: 20080411
  9. ZYVOX [Concomitant]
     Dates: start: 20080417, end: 20080423
  10. AMIKACIN SULFATE [Concomitant]
     Dosage: 1200 MG EVERY MONDAY, WEDNESDAY AND FRIDAY
     Dates: start: 20080409, end: 20080418
  11. NEXIUM [Concomitant]
     Route: 048
     Dates: start: 20080411, end: 20080513
  12. LOTRISONE [Concomitant]
     Dosage: TWICE DAILY
     Dates: start: 20080528
  13. ALPRAZOLAM [Concomitant]
     Dosage: 1 TABLET AT BEDTIME
     Route: 048
     Dates: start: 20080411
  14. PRIMAXIN [Concomitant]
     Dates: start: 20080327

REACTIONS (1)
  - PANCREATITIS ACUTE [None]
